FAERS Safety Report 20173424 (Version 1)
Quarter: 2021Q4

REPORT INFORMATION
  Report Type: Other
  Country: US (occurrence: None)
  Receive Date: 20211212
  Receipt Date: 20211212
  Transmission Date: 20220303
  Serious: Yes (Hospitalization)
  Sender: FDA-Public Use
  Company Number: US-Square-000037

PATIENT
  Age: 32 Month
  Sex: Female

DRUGS (7)
  1. ACYCLOVIR [Suspect]
     Active Substance: ACYCLOVIR
     Indication: Herpes simplex
     Dosage: IV 20 MG/KG QID (4 TIMES A DAY)
     Route: 042
  2. CEPHALEXIN [Concomitant]
     Active Substance: CEPHALEXIN
     Indication: Herpes simplex
  3. MUPIROCIN [Concomitant]
     Active Substance: MUPIROCIN
     Indication: Herpes simplex
  4. BACITRACIN [Concomitant]
     Active Substance: BACITRACIN
     Indication: Wound
  5. CEFEPIME [Concomitant]
     Active Substance: CEFEPIME HYDROCHLORIDE
     Indication: Pseudomonas infection
  6. ACYCLOVIR [Suspect]
     Active Substance: ACYCLOVIR
     Indication: Herpes simplex
     Dosage: 20 MG/KG 4 TIMES DAILY (QID),4 TIMES A DAY.
     Route: 048
  7. ACYCLOVIR [Suspect]
     Active Substance: ACYCLOVIR
     Indication: Infection prophylaxis
     Dosage: 20 MG/KG TWICE DAILY
     Route: 048

REACTIONS (2)
  - Herpes simplex [Recovering/Resolving]
  - Drug resistance [Unknown]
